FAERS Safety Report 8303853-X (Version None)
Quarter: 2012Q2

REPORT INFORMATION
  Report Type: 
  Country: None (occurrence: None)
  Receive Date: 20120423
  Receipt Date: 20120416
  Transmission Date: 20120825
  Serious: Yes (Hospitalization, Other)
  Sender: FDA-Public Use
  Company Number: PHHY2010CA75140

PATIENT
  Sex: Female

DRUGS (1)
  1. SANDOSTATIN LAR [Suspect]
     Indication: PANCREATITIS CHRONIC
     Dosage: 20 MG, EVERY 4 WEEKS
     Route: 030
     Dates: start: 20030501

REACTIONS (11)
  - PANCREATIC CYST [None]
  - VOMITING [None]
  - NASAL CONGESTION [None]
  - HEADACHE [None]
  - APHAGIA [None]
  - PANCREATIC DUCT OBSTRUCTION [None]
  - PANCREATITIS RELAPSING [None]
  - POOR QUALITY SLEEP [None]
  - DYSPEPSIA [None]
  - ABDOMINAL PAIN [None]
  - NAUSEA [None]
